FAERS Safety Report 13186569 (Version 5)
Quarter: 2017Q1

REPORT INFORMATION
  Report Type: Spontaneous
  Country: US (occurrence: US)
  Receive Date: 20170205
  Receipt Date: 20170307
  Transmission Date: 20170428
  Serious: Yes (Other)
  Sender: FDA-Public Use
  Company Number: US-LUNDBECK-DKLU2025481

PATIENT
  Age: 41 Year
  Sex: Male

DRUGS (2)
  1. NORTHERA [Suspect]
     Active Substance: DROXIDOPA
     Indication: AUTONOMIC NEUROPATHY
     Dosage: TITRATION B
     Route: 065
     Dates: start: 20170112
  2. NORTHERA [Suspect]
     Active Substance: DROXIDOPA
     Indication: AUTONOMIC NEUROPATHY
     Dosage: TITRATION B
     Route: 065
     Dates: start: 201701

REACTIONS (12)
  - Arrhythmia [Unknown]
  - Presyncope [Unknown]
  - Condition aggravated [Unknown]
  - Blood pressure systolic increased [Unknown]
  - Fatigue [Unknown]
  - Atrial fibrillation [Recovered/Resolved]
  - Ventricular extrasystoles [Unknown]
  - Drug withdrawal headache [Recovered/Resolved]
  - Chest discomfort [Unknown]
  - Diarrhoea [Unknown]
  - Headache [Unknown]
  - Abdominal discomfort [Unknown]

NARRATIVE: CASE EVENT DATE: 20170113
